FAERS Safety Report 10066593 (Version 1)
Quarter: 2014Q2

REPORT INFORMATION
  Report Type: Spontaneous
  Country: CH (occurrence: CH)
  Receive Date: 20140408
  Receipt Date: 20140408
  Transmission Date: 20141212
  Serious: Yes (Other)
  Sender: FDA-Public Use
  Company Number: CH-B.I. PHARMACEUTICALS,INC./RIDGEFIELD-2014-BI-14729SI

PATIENT
  Age: 56 Year
  Sex: Male
  Weight: 81 kg

DRUGS (4)
  1. JENTADUETO [Suspect]
     Indication: PRODUCT USED FOR UNKNOWN INDICATION
     Dosage: DOSE PER APPLICATION: 2.5/1000 MILLIGRAM
     Route: 048
     Dates: start: 201309, end: 20131106
  2. CANDESARTAN/CANDESARTAN [Concomitant]
     Route: 065
     Dates: start: 2009
  3. ASS/ACETYLSALICYLIC ACID [Concomitant]
     Route: 065
  4. AMLODIPIN/AMLODIPINE [Concomitant]
     Route: 065

REACTIONS (1)
  - Hepatocellular injury [Recovered/Resolved]
